FAERS Safety Report 5526963-9 (Version None)
Quarter: 2007Q4

REPORT INFORMATION
  Report Type: 
  Country: None (occurrence: None)
  Receive Date: 20071123
  Receipt Date: 20061017
  Transmission Date: 20080405
  Serious: Yes (Death)
  Sender: FDA-Public Use
  Company Number: 2006MP001126

PATIENT
  Age: 69 Year
  Sex: Male
  Weight: 64.5 kg

DRUGS (7)
  1. GLIADEL [Suspect]
     Indication: GLIOBLASTOMA MULTIFORME
     Dosage: ;X1;ICER
     Dates: start: 20060719
  2. 06-BENZYLGUANINE (06BG) [Suspect]
     Indication: GLIOBLASTOMA MULTIFORME
     Dosage: 30 MG/M**2;QD;IV
     Route: 042
     Dates: start: 20060719, end: 20060723
  3. CARBATROL [Concomitant]
  4. ZANTAC [Concomitant]
  5. HYDROCHLOROTHIAZIDE [Concomitant]
  6. SODIUM CHLORIDE INJ [Concomitant]
  7. DECADRON [Concomitant]

REACTIONS (1)
  - DISEASE PROGRESSION [None]
